FAERS Safety Report 18521933 (Version 1)
Quarter: 2020Q4

REPORT INFORMATION
  Report Type: Spontaneous
  Country: US (occurrence: US)
  Receive Date: 20201119
  Receipt Date: 20201119
  Transmission Date: 20210114
  Serious: No
  Sender: FDA-Public Use
  Company Number: US-MYLANLABS-2020M1093452

PATIENT
  Age: 58 Year
  Sex: Female
  Weight: 73 kg

DRUGS (3)
  1. ESTRADIOL TRANSDERMAL SYSTEM [Suspect]
     Active Substance: ESTRADIOL
     Dosage: 0.037 MILLIGRAM, QD
     Route: 062
     Dates: start: 20201103
  2. FLECAINIDE [Concomitant]
     Active Substance: FLECAINIDE
     Indication: CARDIAC DISORDER
     Dosage: 150 MILLIGRAM, BID
  3. ESTRADIOL TRANSDERMAL SYSTEM [Suspect]
     Active Substance: ESTRADIOL
     Indication: HORMONE REPLACEMENT THERAPY
     Dosage: 0.037 MILLIGRAM, QD
     Route: 062
     Dates: start: 202010, end: 202010

REACTIONS (4)
  - Nausea [Recovered/Resolved]
  - Feeling abnormal [Unknown]
  - Irritability [Unknown]
  - Dizziness [Unknown]

NARRATIVE: CASE EVENT DATE: 2020
